FAERS Safety Report 7340890-6 (Version None)
Quarter: 2011Q1

REPORT INFORMATION
  Report Type: 
  Country: None (occurrence: None)
  Receive Date: 20110309
  Receipt Date: 20110215
  Transmission Date: 20110831
  Serious: No
  Sender: FDA-Public Use
  Company Number: US-B.I. PHARMACEUTICALS,INC./RIDGEFIELD-2011-BP-06038BP

PATIENT
  Sex: Female

DRUGS (15)
  1. MULTIVITAMIN [Concomitant]
     Indication: PROPHYLAXIS
  2. SINGULAIR [Concomitant]
     Indication: CHRONIC OBSTRUCTIVE PULMONARY DISEASE
  3. MUCINEX D [Concomitant]
     Indication: MULTIPLE ALLERGIES
  4. CO Q10 [Concomitant]
     Indication: PROPHYLAXIS
  5. SPIRIVA [Suspect]
     Indication: CHRONIC OBSTRUCTIVE PULMONARY DISEASE
     Dosage: 18 MCG
     Route: 055
     Dates: start: 20110210
  6. PRISTIQ [Concomitant]
     Indication: DEPRESSION
  7. SYNTHROID [Concomitant]
     Dosage: 150 MCG
  8. CLONIDINE [Concomitant]
     Indication: HYPERTENSION
  9. HYDRALAZINE [Concomitant]
     Indication: HYPERTENSION
  10. ASA [Concomitant]
     Indication: PROPHYLAXIS
  11. PRILOSEC [Concomitant]
     Indication: ABDOMINAL DISCOMFORT
  12. LIPITOR [Concomitant]
     Indication: BLOOD CHOLESTEROL INCREASED
  13. DEPLIN [Concomitant]
     Indication: DEPRESSION
  14. PLAVIX [Concomitant]
     Indication: MYOCARDIAL INFARCTION
  15. DURAGESIC-50 [Concomitant]
     Dosage: 150 MCG

REACTIONS (4)
  - FEELING COLD [None]
  - NASOPHARYNGITIS [None]
  - DRY MOUTH [None]
  - ANGER [None]
